FAERS Safety Report 8955081 (Version 1)
Quarter: 2012Q4

REPORT INFORMATION
  Report Type: Spontaneous
  Country: DK (occurrence: None)
  Receive Date: 20121129
  Receipt Date: 20121129
  Transmission Date: 20130627
  Serious: Yes (Other)
  Sender: FDA-Public Use
  Company Number: 2012MA013554

PATIENT
  Age: 74 Year
  Sex: Male

DRUGS (3)
  1. FERROUS SULFATE [Suspect]
     Indication: ANAEMIA
     Route: 042
     Dates: start: 201203
  2. PREVISCAN [Concomitant]
  3. CORDARONE [Concomitant]

REACTIONS (4)
  - Anaphylactoid reaction [None]
  - Dyspnoea [None]
  - Anaemia [None]
  - Disease recurrence [None]
